FAERS Safety Report 5628270-2 (Version None)
Quarter: 2008Q1

REPORT INFORMATION
  Report Type: 
  Country: None (occurrence: None)
  Receive Date: 20080215
  Receipt Date: 20080207
  Transmission Date: 20080703
  Serious: Yes (Other)
  Sender: FDA-Public Use
  Company Number: US-PFIZER INC-2007082442

PATIENT
  Sex: Female
  Weight: 90.909 kg

DRUGS (4)
  1. CHANTIX [Suspect]
     Indication: SMOKING CESSATION THERAPY
     Dosage: TEXT:EVERY DAY
     Route: 048
  2. TRAZODONE HCL [Concomitant]
  3. LEXAPRO [Concomitant]
  4. CYMBALTA [Concomitant]

REACTIONS (6)
  - CATARACT [None]
  - DIZZINESS [None]
  - DRY EYE [None]
  - MACULAR DEGENERATION [None]
  - VISION BLURRED [None]
  - VISUAL ACUITY REDUCED [None]
